FAERS Safety Report 6264531-4 (Version None)
Quarter: 2009Q3

REPORT INFORMATION
  Report Type: 
  Country: None (occurrence: None)
  Receive Date: 20090708
  Receipt Date: 20090624
  Transmission Date: 20100115
  Serious: Yes (Other)
  Sender: FDA-Public Use
  Company Number: POMP-1000644

PATIENT
  Age: 12 Month
  Sex: Male
  Weight: 10.5 kg

DRUGS (4)
  1. MYOZYME [Suspect]
     Indication: GLYCOGEN STORAGE DISEASE TYPE II
     Dosage: 20 MG/KG, Q2W, INTRAVENOUS
     Route: 042
     Dates: start: 20080828
  2. MYOZYME [Suspect]
  3. HYDROCORTISONE [Concomitant]
  4. ANTIBIOTICS [Concomitant]

REACTIONS (6)
  - ERYTHEMA [None]
  - HYPERSENSITIVITY [None]
  - INFLUENZA [None]
  - INFUSION RELATED REACTION [None]
  - OXYGEN SATURATION DECREASED [None]
  - PYREXIA [None]
